FAERS Safety Report 19441573 (Version 1)
Quarter: 2021Q2

REPORT INFORMATION
  Report Type: Spontaneous
  Country: FR (occurrence: FR)
  Receive Date: 20210621
  Receipt Date: 20210621
  Transmission Date: 20210717
  Serious: Yes (Other)
  Sender: FDA-Public Use
  Company Number: FR-BAXTER-2021BAX016472

PATIENT
  Sex: Female

DRUGS (2)
  1. CEFOTAXIME BASE [Suspect]
     Active Substance: CEFOTAXIME SODIUM
     Indication: ESCHERICHIA PYELONEPHRITIS
     Route: 042
     Dates: start: 20210517, end: 20210522
  2. METRONIDAZOLE BAXTER 0,5 POUR CENT, SOLUTION INJECTABLE EN POCHE [Suspect]
     Active Substance: METRONIDAZOLE
     Indication: PYELONEPHRITIS
     Route: 042
     Dates: start: 20210520, end: 20210522

REACTIONS (1)
  - Cholestasis [Not Recovered/Not Resolved]
